FAERS Safety Report 9288218 (Version 3)
Quarter: 2013Q3

REPORT INFORMATION
  Report Type: Spontaneous
  Country: US (occurrence: US)
  Receive Date: 20130514
  Receipt Date: 20130708
  Transmission Date: 20140515
  Serious: Yes (Other)
  Sender: FDA-Public Use
  Company Number: US-JNJFOC-20130502599

PATIENT
  Age: 66 Year
  Sex: Female
  Weight: 126.55 kg

DRUGS (2)
  1. IMODIUM MULTI-SYMPTOM RELIEF [Suspect]
     Route: 048
  2. IMODIUM MULTI-SYMPTOM RELIEF [Suspect]
     Indication: DIARRHOEA
     Route: 048
     Dates: start: 20130312

REACTIONS (4)
  - Foreign body [Recovered/Resolved]
  - Wrong technique in drug usage process [Unknown]
  - Product quality issue [None]
  - Choking [None]
